FAERS Safety Report 13882969 (Version 2)
Quarter: 2017Q3

REPORT INFORMATION
  Report Type: Spontaneous
  Country: US (occurrence: US)
  Receive Date: 20170818
  Receipt Date: 20170824
  Transmission Date: 20171127
  Serious: Yes (Other)
  Sender: FDA-Public Use
  Company Number: US-MYLANLABS-2017M1050569

PATIENT

DRUGS (4)
  1. CARBAMAZEPINE. [Concomitant]
     Active Substance: CARBAMAZEPINE
     Indication: PRODUCT USED FOR UNKNOWN INDICATION
     Dosage: UNK
  2. PREDNISONE. [Suspect]
     Active Substance: PREDNISONE
     Dosage: LOWER DOSE (10 MG OR 20 MG), TWICE DAILY
     Route: 048
     Dates: start: 2014, end: 2014
  3. PREDNISONE. [Suspect]
     Active Substance: PREDNISONE
     Dosage: DOUBLE DOSE
     Route: 048
     Dates: start: 2014, end: 2014
  4. PREDNISONE. [Suspect]
     Active Substance: PREDNISONE
     Indication: GAIT INABILITY
     Dosage: UNK
     Route: 048

REACTIONS (1)
  - Drug ineffective [Recovered/Resolved]

NARRATIVE: CASE EVENT DATE: 2014
